FAERS Safety Report 5316353-6 (Version None)
Quarter: 2007Q2

REPORT INFORMATION
  Report Type: 
  Country: None (occurrence: None)
  Receive Date: 20070430
  Receipt Date: 20070423
  Transmission Date: 20071010
  Serious: Yes (Death)
  Sender: FDA-Public Use
  Company Number: 2007SP007784

PATIENT
  Age: 40 Year
  Sex: Female

DRUGS (1)
  1. NOXAFIL [Suspect]
     Indication: OESOPHAGEAL CANDIDIASIS
     Dosage: 400 MG, BID; PO
     Route: 048

REACTIONS (2)
  - CARDIAC ARREST [None]
  - RENAL CELL CARCINOMA STAGE UNSPECIFIED [None]
